FAERS Safety Report 9039331 (Version 1)
Quarter: 2013Q1

REPORT INFORMATION
  Report Type: Report from Study
  Country: US (occurrence: US)
  Receive Date: 20130129
  Receipt Date: 20130129
  Transmission Date: 20140127
  Serious: No
  Sender: FDA-Public Use
  Company Number: US-ABBOTT-12P-163-0907374-00

PATIENT
  Age: 14 Year
  Sex: Female

DRUGS (4)
  1. HUMIRA 40 MG/0.8 ML PEN [Suspect]
     Indication: CROHN^S DISEASE
     Dosage: LOADING DOSE FOUR 40 MG INJECTIONS
     Dates: start: 20120208
  2. PENTASA [Concomitant]
     Indication: PRODUCT USED FOR UNKNOWN INDICATION
     Dosage: 5 PILLS A DAY
  3. VITAMINS [Concomitant]
     Indication: PRODUCT USED FOR UNKNOWN INDICATION
  4. PRO-BIOTIC VSL#3 [Concomitant]
     Indication: PRODUCT USED FOR UNKNOWN INDICATION
     Dosage: DAILY

REACTIONS (8)
  - Sinus congestion [Recovering/Resolving]
  - Dyspnoea [Recovering/Resolving]
  - Palmar erythema [Recovered/Resolved]
  - Skin fissures [Recovered/Resolved]
  - Pain [Recovering/Resolving]
  - Pain in extremity [Recovering/Resolving]
  - Injection site erythema [Unknown]
  - Injection site pruritus [Unknown]
